FAERS Safety Report 14427798 (Version 1)
Quarter: 2018Q1

REPORT INFORMATION
  Report Type: Spontaneous
  Country: FR (occurrence: FR)
  Receive Date: 20180123
  Receipt Date: 20180123
  Transmission Date: 20180509
  Serious: Yes (Other)
  Sender: FDA-Public Use
  Company Number: PHHY2017FR199634

PATIENT
  Age: 27 Year
  Sex: Female

DRUGS (5)
  1. OMEPRAZOLE. [Suspect]
     Active Substance: OMEPRAZOLE
     Indication: PAIN
     Dosage: 40 MG
     Route: 065
  2. ACUPAN [Suspect]
     Active Substance: NEFOPAM HYDROCHLORIDE
     Indication: PAIN
     Route: 042
  3. PERFALGAN [Suspect]
     Active Substance: ACETAMINOPHEN
     Indication: PAIN
     Route: 065
  4. PROFENID [Suspect]
     Active Substance: KETOPROFEN
     Indication: PAIN
     Route: 042
  5. PENTHROX [Suspect]
     Active Substance: METHOXYFLURANE
     Indication: PAIN
     Route: 055

REACTIONS (5)
  - Anaphylactic reaction [Unknown]
  - Hypoaesthesia oral [Unknown]
  - Dry mouth [Unknown]
  - Drug ineffective [Unknown]
  - Paraesthesia [Unknown]

NARRATIVE: CASE EVENT DATE: 20171203
